FAERS Safety Report 16475827 (Version 1)
Quarter: 2019Q2

REPORT INFORMATION
  Report Type: Spontaneous
  Country: MX (occurrence: MX)
  Receive Date: 20190625
  Receipt Date: 20190625
  Transmission Date: 20190711
  Serious: No
  Sender: FDA-Public Use
  Company Number: MX-BEH-2019103323

PATIENT
  Age: 6 Year
  Sex: Male
  Weight: 23 kg

DRUGS (1)
  1. HIZENTRA [Suspect]
     Active Substance: HUMAN IMMUNOGLOBULIN G
     Indication: IMMUNODEFICIENCY CONGENITAL
     Dosage: 4 GRAM
     Route: 058
     Dates: start: 20190527, end: 20190527

REACTIONS (2)
  - Erythema [Unknown]
  - Papule [Unknown]

NARRATIVE: CASE EVENT DATE: 20190528
